FAERS Safety Report 6078057-4 (Version None)
Quarter: 2009Q1

REPORT INFORMATION
  Report Type: 
  Country: None (occurrence: None)
  Receive Date: 20090213
  Receipt Date: 20090113
  Transmission Date: 20090719
  Serious: No
  Sender: FDA-Public Use
  Company Number: US-BAYER-200810183NA

PATIENT

DRUGS (1)
  1. ULTRAVIST 150 [Suspect]
     Indication: COMPUTERISED TOMOGRAM
     Route: 042

REACTIONS (5)
  - DYSPHAGIA [None]
  - ERYTHEMA [None]
  - FACE OEDEMA [None]
  - FLUSHING [None]
  - SWELLING [None]
